FAERS Safety Report 4507516-8 (Version None)
Quarter: 2004Q4

REPORT INFORMATION
  Report Type: 
  Country: None (occurrence: None)
  Receive Date: 20041118
  Receipt Date: 20041108
  Transmission Date: 20050328
  Serious: Yes (Hospitalization)
  Sender: FDA-Public Use
  Company Number: 2004091445

PATIENT
  Age: 65 Year
  Sex: Male

DRUGS (7)
  1. XANAX [Suspect]
     Indication: ILL-DEFINED DISORDER
     Dosage: 1.5 MG (0.5 MG, EVERY DAY), ORAL
     Route: 048
  2. PROXETINE (PAROXETINE HYDROCHLORIDE) (PAROXETINE) [Suspect]
     Indication: ILL-DEFINED DISORDER
     Dosage: 1 DF (EVERY DAY), ORAL
     Route: 048
  3. ORNITHINE OXOGLURATE (ORNITHINE OXOGLURATE) [Suspect]
     Indication: ILL-DEFINED DISORDER
     Dosage: 1 DF (EVERY DAY), ORAL
     Route: 048
  4. HEPARIN-FRACTION, SODIUM SALT (HEPARIN-FRACTION, SODIUM SALT) [Suspect]
     Indication: ILL-DEFINED DISORDER
     Dosage: 1 DF (EVERY DAY), SUBCUTANEOUS
     Route: 058
  5. HYDROMORPHONE HCL [Suspect]
     Indication: ILL-DEFINED DISORDER
     Dosage: 8 MG (EVERY DAY), ORAL
     Route: 048
  6. INITARD (INSULIN, INSULIN INJECTION, ISOPHANE) [Suspect]
     Indication: ILL-DEFINED DISORDER
     Dosage: (EVERY DAY), SUBCUTANEOUS
     Route: 058
  7. VINORELBINE DITARTRATE 9VINORELBINE DITARTRATE) [Concomitant]

REACTIONS (9)
  - ANOREXIA [None]
  - CONDITION AGGRAVATED [None]
  - CONFUSIONAL STATE [None]
  - DEHYDRATION [None]
  - DISORIENTATION [None]
  - GENERAL PHYSICAL HEALTH DETERIORATION [None]
  - NERVOUS SYSTEM DISORDER [None]
  - RENAL FAILURE ACUTE [None]
  - VOMITING [None]
